FAERS Safety Report 9440482 (Version 2)
Quarter: 2013Q4

REPORT INFORMATION
  Report Type: Report from Study
  Country: JP (occurrence: JP)
  Receive Date: 20130805
  Receipt Date: 20131024
  Transmission Date: 20140711
  Serious: Yes (Death)
  Sender: FDA-Public Use
  Company Number: JP-EISAI INC-E2020-12339-SOL-JP

PATIENT
  Age: 86 Year
  Sex: Male

DRUGS (6)
  1. ARICEPT [Suspect]
     Indication: DEMENTIA ALZHEIMER^S TYPE
     Route: 048
     Dates: start: 20101101, end: 20101129
  2. ARICEPT [Suspect]
     Route: 048
     Dates: start: 20101130, end: 20120911
  3. DIOVAN [Concomitant]
     Dosage: UNKNOWN
     Route: 048
  4. MUCOSAL-L [Concomitant]
     Dosage: UNKNOWN
     Route: 048
  5. EXFORGE [Concomitant]
     Route: 048
     Dates: start: 20110526, end: 20120911
  6. MUCODYNE [Concomitant]
     Route: 048
     Dates: start: 20120813, end: 20120911

REACTIONS (1)
  - Aortic dissection rupture [Fatal]
